FAERS Safety Report 14871018 (Version 2)
Quarter: 2018Q4

REPORT INFORMATION
  Report Type: Spontaneous
  Country: CA (occurrence: CA)
  Receive Date: 20180509
  Receipt Date: 20181211
  Transmission Date: 20190204
  Serious: Yes (Hospitalization, Other)
  Sender: FDA-Public Use
  Company Number: CA-GLAXOSMITHKLINE-CA2018GSK076326

PATIENT
  Age: 64 Year
  Sex: Male

DRUGS (1)
  1. BENLYSTA [Suspect]
     Active Substance: BELIMUMAB
     Indication: SYSTEMIC LUPUS ERYTHEMATOSUS
     Dosage: 945 MG, UNK
     Route: 042
     Dates: end: 20181115

REACTIONS (2)
  - Peritonitis [Unknown]
  - Vein rupture [Unknown]

NARRATIVE: CASE EVENT DATE: 20180430
